FAERS Safety Report 5334065-X (Version None)
Quarter: 2007Q2

REPORT INFORMATION
  Report Type: 
  Country: None (occurrence: None)
  Receive Date: 20070524
  Receipt Date: 20070515
  Transmission Date: 20071010
  Serious: Yes (Hospitalization, Other)
  Sender: FDA-Public Use
  Company Number: GB-PFIZER INC-2007040782

PATIENT
  Sex: Male
  Weight: 4.28 kg

DRUGS (3)
  1. SERTRALINE [Suspect]
  2. PENICILLIN G [Concomitant]
     Route: 042
     Dates: start: 20070416, end: 20070418
  3. GENTAMICIN [Concomitant]
     Route: 042
     Dates: start: 20070416, end: 20070418

REACTIONS (7)
  - CONVULSION [None]
  - DRUG EXPOSURE DURING PREGNANCY [None]
  - DYSKINESIA [None]
  - GRUNTING [None]
  - HYPERVIGILANCE [None]
  - TACHYPNOEA [None]
  - TREMOR [None]
